FAERS Safety Report 15087475 (Version 2)
Quarter: 2018Q3

REPORT INFORMATION
  Report Type: Report from Study
  Country: US (occurrence: US)
  Receive Date: 20180628
  Receipt Date: 20180713
  Transmission Date: 20181010
  Serious: Yes (Hospitalization)
  Sender: FDA-Public Use
  Company Number: US-JAZZ-2018-US-007013

PATIENT
  Sex: Female

DRUGS (38)
  1. QUETIAPINE FUMARATE. [Concomitant]
     Active Substance: QUETIAPINE FUMARATE
  2. TIZANIDINE HCL [Concomitant]
     Active Substance: TIZANIDINE HYDROCHLORIDE
  3. VITAMIN D3 [Concomitant]
     Active Substance: CHOLECALCIFEROL
  4. FENTORA [Concomitant]
     Active Substance: FENTANYL CITRATE
  5. YASMIN [Concomitant]
     Active Substance: DROSPIRENONE\ETHINYL ESTRADIOL
  6. XYREM [Suspect]
     Active Substance: SODIUM OXYBATE
     Dosage: 4.5 G, BID
     Route: 048
     Dates: start: 201801
  7. TROSPIUM CHLORIDE. [Concomitant]
     Active Substance: TROSPIUM CHLORIDE
  8. SULFACETAMIDE W/SULFUR [Concomitant]
  9. GABAPENTIN. [Concomitant]
     Active Substance: GABAPENTIN
  10. METHADONE HCL [Concomitant]
     Active Substance: METHADONE HYDROCHLORIDE
  11. CALCIUM + VIT D [Concomitant]
     Active Substance: CALCIUM\VITAMIN D
  12. CLONAZEPAM. [Concomitant]
     Active Substance: CLONAZEPAM
  13. BISACODYL. [Concomitant]
     Active Substance: BISACODYL
  14. CLINDAMYCIN HYDROCHLORIDE. [Concomitant]
     Active Substance: CLINDAMYCIN HYDROCHLORIDE
  15. CLONIDINE HCL [Concomitant]
     Active Substance: CLONIDINE HYDROCHLORIDE
  16. RIZATRIPTAN. [Concomitant]
     Active Substance: RIZATRIPTAN
  17. ALENDRONATE SODIUM. [Concomitant]
     Active Substance: ALENDRONATE SODIUM
  18. PYRIDIUM [Concomitant]
     Active Substance: PHENAZOPYRIDINE
  19. SENNA LAXATIVE [Concomitant]
     Active Substance: SENNOSIDES
  20. XYREM [Suspect]
     Active Substance: SODIUM OXYBATE
     Dosage: DOSE ADJUSTMENT
     Route: 048
     Dates: start: 201506, end: 201801
  21. XYREM [Suspect]
     Active Substance: SODIUM OXYBATE
     Indication: NARCOLEPSY
     Dosage: 4 G, BID
     Route: 048
     Dates: start: 200911, end: 200912
  22. FLUOCINONIDE. [Concomitant]
     Active Substance: FLUOCINONIDE
  23. RELISTOR [Concomitant]
     Active Substance: METHYLNALTREXONE BROMIDE
  24. CYMBALTA [Concomitant]
     Active Substance: DULOXETINE HYDROCHLORIDE
  25. MIDODRINE [Concomitant]
     Active Substance: MIDODRINE
  26. DENTA 5000 PLUS [Concomitant]
     Active Substance: SODIUM FLUORIDE
  27. PROPRANOLOL [Concomitant]
     Active Substance: PROPRANOLOL HYDROCHLORIDE
  28. MOVANTIK [Concomitant]
     Active Substance: NALOXEGOL OXALATE
  29. DIFFERIN [Concomitant]
     Active Substance: ADAPALENE
  30. METOPROLOL. [Concomitant]
     Active Substance: METOPROLOL
  31. GLICLAZIDE [Concomitant]
     Active Substance: GLICLAZIDE
  32. DOCUSATE SODIUM. [Concomitant]
     Active Substance: DOCUSATE SODIUM
  33. XYREM [Suspect]
     Active Substance: SODIUM OXYBATE
     Indication: CATAPLEXY
     Dosage: 2.25 G, BID
     Route: 048
     Dates: start: 201506, end: 201506
  34. LYRICA [Concomitant]
     Active Substance: PREGABALIN
  35. MAXALT?MLT [Concomitant]
     Active Substance: RIZATRIPTAN BENZOATE
  36. DIFLUPREDNATE [Concomitant]
     Active Substance: DIFLUPREDNATE
  37. CHLORAL HYDRATE [Concomitant]
     Active Substance: CHLORAL HYDRATE
  38. NUVIGIL [Concomitant]
     Active Substance: ARMODAFINIL

REACTIONS (1)
  - Complex regional pain syndrome [Not Recovered/Not Resolved]
